FAERS Safety Report 5001991-0 (Version None)
Quarter: 2006Q2

REPORT INFORMATION
  Report Type: 
  Country: None (occurrence: None)
  Receive Date: 20060511
  Receipt Date: 20060511
  Transmission Date: 20061013
  Serious: No
  Sender: FDA-Public Use
  Company Number: None

PATIENT
  Sex: Female
  Weight: 62.5964 kg

DRUGS (1)
  1. ZYRTEC-D 12 HOUR [Suspect]
     Indication: SEASONAL ALLERGY
     Dosage: 10 MG H.S. PO
     Route: 048
     Dates: start: 20060427

REACTIONS (5)
  - BACK PAIN [None]
  - DRY MOUTH [None]
  - LACRIMATION INCREASED [None]
  - PYREXIA [None]
  - UNEVALUABLE EVENT [None]
